FAERS Safety Report 19125734 (Version 1)
Quarter: 2021Q2

REPORT INFORMATION
  Report Type: Spontaneous
  Country: US (occurrence: US)
  Receive Date: 20210412
  Receipt Date: 20210412
  Transmission Date: 20210717
  Serious: No
  Sender: FDA-Public Use
  Company Number: US-INTRA-CELLULAR THERAPIES, INC.-2021ICT00009

PATIENT
  Age: 66 Year
  Sex: Female
  Weight: 77.1 kg

DRUGS (5)
  1. NARDIL [Concomitant]
     Active Substance: PHENELZINE SULFATE
  2. UNSPECIFIED VITAMINS [Concomitant]
     Active Substance: VITAMINS
  3. CAPLYTA [Suspect]
     Active Substance: LUMATEPERONE
     Indication: DEPRESSION
     Dosage: 42 MG, 1X/DAY
     Route: 048
     Dates: start: 20201208
  4. UNSPECIFIED SHINGLES SHOT [Suspect]
     Active Substance: UNSPECIFIED INGREDIENT
     Dosage: UNK
     Dates: start: 20201220
  5. VITAMIN B12 [Concomitant]
     Active Substance: CYANOCOBALAMIN

REACTIONS (3)
  - Off label use [Not Recovered/Not Resolved]
  - Ageusia [Not Recovered/Not Resolved]
  - Dry mouth [Not Recovered/Not Resolved]

NARRATIVE: CASE EVENT DATE: 20201208
